FAERS Safety Report 8186401-7 (Version None)
Quarter: 2012Q1

REPORT INFORMATION
  Report Type: 
  Country: None (occurrence: None)
  Receive Date: 20120306
  Receipt Date: 20120301
  Transmission Date: 20120608
  Serious: No
  Sender: FDA-Public Use
  Company Number: NL-US-EMD SERONO, INC.-230002N09NLD

PATIENT
  Sex: Male

DRUGS (2)
  1. ACENOCOUMAROL [Concomitant]
     Dates: start: 20060101
  2. REBIF [Suspect]
     Indication: PRODUCT USED FOR UNKNOWN INDICATION
     Dates: start: 20090727

REACTIONS (1)
  - HAEMATOMA [None]
